FAERS Safety Report 5055219-6 (Version None)
Quarter: 2006Q3

REPORT INFORMATION
  Report Type: 
  Country: None (occurrence: None)
  Receive Date: 20060714
  Receipt Date: 20060707
  Transmission Date: 20061208
  Serious: Yes (Hospitalization)
  Sender: FDA-Public Use
  Company Number: FRWYE054207JUL06

PATIENT
  Age: 60 Year
  Sex: Female

DRUGS (9)
  1. EFFEXOR [Suspect]
     Route: 048
     Dates: end: 20060613
  2. INEXIUM (ESOMEPRAZOLE, , 0) [Suspect]
     Dosage: 20  MG 1X PER 1 DAY
     Route: 048
  3. CLONAZEPAM [Concomitant]
  4. ZOLPIDEM TARTRATE [Concomitant]
  5. CALCIDOSE (CALCIUM CARBONATE) [Concomitant]
  6. VITAMIN D [Concomitant]
  7. TRAMADOL HCL [Concomitant]
  8. POTASSIUM CHLORIDE [Concomitant]
  9. FOSAMAX [Concomitant]

REACTIONS (2)
  - COMA [None]
  - HYPONATRAEMIA [None]
